FAERS Safety Report 7341255-3 (Version None)
Quarter: 2011Q1

REPORT INFORMATION
  Report Type: 
  Country: None (occurrence: None)
  Receive Date: 20110309
  Receipt Date: 20110223
  Transmission Date: 20110831
  Serious: Yes (Hospitalization, Other)
  Sender: FDA-Public Use
  Company Number: PHHY2010DE16182

PATIENT
  Sex: Male

DRUGS (4)
  1. BACLOFEN [Concomitant]
     Indication: MUSCLE SPASTICITY
  2. EXTAVIA [Suspect]
     Indication: MULTIPLE SCLEROSIS
     Dosage: 250 UG/ML, QOD
     Route: 058
     Dates: start: 20090708, end: 20100101
  3. SULPIRID [Concomitant]
     Dosage: 1-1/2-0
  4. NASAL SPRAY [Concomitant]

REACTIONS (18)
  - MUSCULAR WEAKNESS [None]
  - GENERAL PHYSICAL HEALTH DETERIORATION [None]
  - PARESIS [None]
  - PAIN [None]
  - MULTIPLE SCLEROSIS [None]
  - EXTENSOR PLANTAR RESPONSE [None]
  - AFFECTIVE DISORDER [None]
  - SECONDARY PROGRESSIVE MULTIPLE SCLEROSIS [None]
  - C-REACTIVE PROTEIN INCREASED [None]
  - NASOPHARYNGITIS [None]
  - HYPERTONIA [None]
  - BODY TEMPERATURE INCREASED [None]
  - BACK PAIN [None]
  - INFLUENZA [None]
  - GAMMA-GLUTAMYLTRANSFERASE INCREASED [None]
  - UHTHOFF'S PHENOMENON [None]
  - MUSCULOSKELETAL STIFFNESS [None]
  - GAIT DISTURBANCE [None]
